FAERS Safety Report 24249120 (Version 2)
Quarter: 2024Q3

REPORT INFORMATION
  Report Type: Spontaneous
  Country: IT (occurrence: IT)
  Receive Date: 20240826
  Receipt Date: 20240830
  Transmission Date: 20241016
  Serious: Yes (Hospitalization)
  Sender: JOHNSON AND JOHNSON
  Company Number: None

PATIENT
  Age: 66 Year
  Sex: Male
  Weight: 90 kg

DRUGS (11)
  1. DARZALEX [Suspect]
     Active Substance: DARATUMUMAB
     Indication: Plasma cell myeloma
     Route: 058
     Dates: start: 20240307, end: 20240701
  2. LENALIDOMIDE [Suspect]
     Active Substance: LENALIDOMIDE
     Indication: Plasma cell myeloma
     Route: 048
     Dates: start: 20240307, end: 20240617
  3. DEXAMETHASONE SODIUM PHOSPHATE [Concomitant]
     Active Substance: DEXAMETHASONE PHOSPHATE\DEXAMETHASONE SODIUM PHOSPHATE
     Indication: Adjuvant therapy
     Route: 042
     Dates: start: 20240510, end: 20240701
  4. DEXAMETHASONE SODIUM PHOSPHATE [Concomitant]
     Active Substance: DEXAMETHASONE PHOSPHATE\DEXAMETHASONE SODIUM PHOSPHATE
     Indication: Adjuvant therapy
     Route: 042
     Dates: start: 20240307, end: 20240502
  5. APIDRA [Concomitant]
     Active Substance: INSULIN GLULISINE
  6. ACETAMINOPHEN [Concomitant]
     Active Substance: ACETAMINOPHEN
     Indication: Adjuvant therapy
     Route: 048
     Dates: start: 20240307, end: 20240701
  7. CETIRIZINE HYDROCHLORIDE [Concomitant]
     Active Substance: CETIRIZINE HYDROCHLORIDE
     Indication: Adjuvant therapy
     Route: 048
     Dates: start: 20240510, end: 20240701
  8. ASPIRIN [Concomitant]
     Active Substance: ASPIRIN
     Route: 048
  9. ACICLOVIR ALTER [Concomitant]
     Route: 048
  10. CHLORPHENIRAMINE MALEATE [Concomitant]
     Active Substance: CHLORPHENIRAMINE MALEATE
     Indication: Adjuvant therapy
     Route: 042
     Dates: start: 20240307, end: 20240502
  11. TOUJEO [Concomitant]
     Active Substance: INSULIN GLARGINE
     Indication: Type 2 diabetes mellitus
     Route: 058

REACTIONS (1)
  - Pneumonia legionella [Recovering/Resolving]

NARRATIVE: CASE EVENT DATE: 20240706
